FAERS Safety Report 8956429 (Version 3)
Quarter: 2013Q1

REPORT INFORMATION
  Report Type: Spontaneous
  Country: GR (occurrence: GR)
  Receive Date: 20121210
  Receipt Date: 20130201
  Transmission Date: 20140127
  Serious: Yes (Hospitalization, Other)
  Sender: FDA-Public Use
  Company Number: GR-ALLERGAN-1216726US

PATIENT
  Age: 58 Year
  Sex: Male

DRUGS (2)
  1. OZURDEX [Suspect]
     Indication: RETINAL VEIN OCCLUSION
     Dosage: 0.7 MG, SINGLE
     Route: 031
     Dates: start: 20120723, end: 20120723
  2. INSULIN [Concomitant]
     Indication: DIABETES MELLITUS

REACTIONS (13)
  - Visual acuity reduced [Recovered/Resolved]
  - Hypotension [Unknown]
  - Diabetic vascular disorder [Unknown]
  - General physical health deterioration [Unknown]
  - Vitreous disorder [Unknown]
  - Mobility decreased [Recovered/Resolved]
  - Vomiting [Unknown]
  - Retinal vascular disorder [Unknown]
  - Diabetic retinopathy [Unknown]
  - Iris neovascularisation [Unknown]
  - Glaucoma [Unknown]
  - Headache [Unknown]
  - Eye pain [Recovered/Resolved]
